FAERS Safety Report 7973194-9 (Version None)
Quarter: 2011Q4

REPORT INFORMATION
  Report Type: 
  Country: None (occurrence: None)
  Receive Date: 20111213
  Receipt Date: 20111209
  Transmission Date: 20120403
  Serious: Yes (Death, Life-Threatening, Hospitalization, Disabling)
  Sender: FDA-Public Use
  Company Number: FR-SANOFI-AVENTIS-F01200801254

PATIENT
  Age: 76 Year
  Sex: Male
  Weight: 78 kg

DRUGS (14)
  1. VISKEN [Concomitant]
     Indication: ANGINA PECTORIS
     Dates: start: 20080207
  2. PRAVASTATIN [Concomitant]
     Dates: start: 19980201
  3. LEUPROLIDE ACETATE [Suspect]
     Route: 065
     Dates: start: 20071109, end: 20080425
  4. PANTOPRAZOLE SODIUM [Concomitant]
     Indication: GASTRITIS
     Dates: start: 20020101
  5. ALLOPURINOL ^1A FARMA^ [Concomitant]
     Indication: GOUT
     Dates: start: 20070201, end: 20080330
  6. AMLODIPINE BESYLATE [Concomitant]
     Dates: start: 19980201
  7. BICALUTAMIDE [Suspect]
     Indication: PROSTATE CANCER
     Route: 048
     Dates: start: 20080425, end: 20080524
  8. FLURBIPROFEN [Concomitant]
     Indication: ANGINA PECTORIS
     Dates: start: 20080629
  9. PAROXETINE HCL [Concomitant]
     Indication: DEPRESSION
     Dates: start: 20050101
  10. LEUPROLIDE ACETATE [Suspect]
     Route: 058
     Dates: start: 20080425, end: 20080425
  11. LEUPROLIDE ACETATE [Suspect]
     Route: 058
     Dates: start: 20080725, end: 20080725
  12. ACETYLSALICYLATE DE LYSINE WINTHROP [Concomitant]
     Dates: start: 20051201, end: 20080206
  13. LEUPROLIDE ACETATE [Suspect]
     Indication: PROSTATE CANCER
     Route: 058
     Dates: start: 20070518, end: 20070518
  14. PLAVIX [Concomitant]
     Dates: start: 20051201

REACTIONS (2)
  - DISEASE PROGRESSION [None]
  - RENAL FAILURE ACUTE [None]
